FAERS Safety Report 4492540-4 (Version None)
Quarter: 2004Q4

REPORT INFORMATION
  Report Type: 
  Country: None (occurrence: None)
  Receive Date: 20041029
  Receipt Date: 20041018
  Transmission Date: 20050328
  Serious: Yes (Other)
  Sender: FDA-Public Use
  Company Number: DE-2004-031465

PATIENT
  Age: 63 Year
  Sex: Male
  Weight: 80 kg

DRUGS (3)
  1. BETASERON [Suspect]
     Dosage: SUBCUTANEOUS
     Route: 058
     Dates: start: 19990101
  2. GLIBENCLAMIDE (GLIBENCALAMIDE) [Concomitant]
  3. MARCUMAR [Concomitant]

REACTIONS (7)
  - ABDOMINAL DISCOMFORT [None]
  - BODY TEMPERATURE INCREASED [None]
  - HEADACHE [None]
  - PHARYNGOLARYNGEAL PAIN [None]
  - SUBDURAL HAEMATOMA [None]
  - TONGUE COATED [None]
  - TONGUE GEOGRAPHIC [None]
